FAERS Safety Report 8567892-6 (Version None)
Quarter: 2012Q3

REPORT INFORMATION
  Report Type: 
  Country: None (occurrence: None)
  Receive Date: 20120803
  Receipt Date: 20120723
  Transmission Date: 20120928
  Serious: Yes (Other)
  Sender: FDA-Public Use
  Company Number: US-CELGENEUS-163-21880-12073243

PATIENT
  Sex: Female

DRUGS (7)
  1. DEXAMETHASONE [Concomitant]
     Indication: MULTIPLE MYELOMA
     Route: 065
     Dates: start: 20081201
  2. REVLIMID [Suspect]
     Dosage: 25 MILLIGRAM
     Route: 048
     Dates: start: 20100701, end: 20100901
  3. DEXAMETHASONE [Concomitant]
     Route: 065
     Dates: start: 20100701, end: 20100901
  4. DEXAMETHASONE [Concomitant]
     Route: 065
     Dates: start: 20090201, end: 20091201
  5. THALOMID [Suspect]
     Indication: PLASMACYTOMA
     Dosage: 200 MILLIGRAM
     Route: 048
     Dates: start: 20081201
  6. BIAXIN [Concomitant]
     Route: 065
     Dates: start: 20090601
  7. REVLIMID [Suspect]
     Indication: MULTIPLE MYELOMA
     Dosage: 25 MILLIGRAM
     Route: 048
     Dates: start: 20090201, end: 20091201

REACTIONS (1)
  - THYROID CANCER [None]
